FAERS Safety Report 5044866-3 (Version None)
Quarter: 2006Q2

REPORT INFORMATION
  Report Type: 
  Country: None (occurrence: None)
  Receive Date: 20060601
  Receipt Date: 20060404
  Transmission Date: 20061013
  Serious: No
  Sender: FDA-Public Use
  Company Number: 2006-BP-01464BP

PATIENT
  Age: 69 Year
  Sex: Female

DRUGS (10)
  1. SPIRIVA [Suspect]
     Indication: CARDIAC DISORDER
     Dosage: 18 MCG (18 MCG,1 CAP DAILY),IH
  2. SPIRIVA [Suspect]
     Indication: LUNG DISORDER
     Dosage: 18 MCG (18 MCG,1 CAP DAILY),IH
  3. SPIRIVA [Suspect]
  4. COUMADIN [Concomitant]
  5. KLOR-CON M20 [Concomitant]
  6. LASIX [Concomitant]
  7. LOVASTATIN [Concomitant]
  8. UNIPHYL [Concomitant]
  9. LANOXIN [Concomitant]
  10. ADVAIR (SERETIDE /01420901/) [Concomitant]

REACTIONS (1)
  - DYSGEUSIA [None]
